FAERS Safety Report 5021958-6 (Version None)
Quarter: 2006Q2

REPORT INFORMATION
  Report Type: 
  Country: None (occurrence: None)
  Receive Date: 20060501
  Receipt Date: 20060124
  Transmission Date: 20061013
  Serious: No
  Sender: FDA-Public Use
  Company Number: 200520488US

PATIENT
  Age: 73 Year
  Sex: Female
  Weight: 47.2 kg

DRUGS (4)
  1. KETEK [Suspect]
     Indication: PNEUMONIA
     Dosage: 800 MG QD PO
     Route: 048
  2. MANY (NOS) [Concomitant]
  3. SYNTHROID [Concomitant]
  4. LASIX [Concomitant]

REACTIONS (5)
  - DRUG INEFFECTIVE [None]
  - DYSPNOEA [None]
  - FREQUENT BOWEL MOVEMENTS [None]
  - ORAL MUCOSAL BLISTERING [None]
  - THROAT TIGHTNESS [None]
